FAERS Safety Report 21921949 (Version 1)
Quarter: 2023Q1

REPORT INFORMATION
  Report Type: Report from Study
  Country: US (occurrence: US)
  Receive Date: 20230127
  Receipt Date: 20230127
  Transmission Date: 20230418
  Serious: Yes (Other)
  Sender: FDA-Public Use
  Company Number: US-ABBVIE-4283590

PATIENT
  Sex: Male

DRUGS (1)
  1. HUMIRA [Suspect]
     Active Substance: ADALIMUMAB
     Indication: Crohn^s disease
     Dosage: FORM STRENGTH-40 MG
     Route: 058
     Dates: start: 20220817

REACTIONS (5)
  - Injury associated with device [Recovering/Resolving]
  - Weight increased [Recovered/Resolved]
  - Crohn^s disease [Recovered/Resolved]
  - Wound complication [Recovering/Resolving]
  - Abdominal distension [Unknown]
